FAERS Safety Report 5618284-0 (Version None)
Quarter: 2008Q1

REPORT INFORMATION
  Report Type: 
  Country: None (occurrence: None)
  Receive Date: 20080207
  Receipt Date: 20080129
  Transmission Date: 20080703
  Serious: Yes (Hospitalization)
  Sender: FDA-Public Use
  Company Number: JP-BAYER-200711092BYL

PATIENT
  Age: 85 Year
  Sex: Male

DRUGS (5)
  1. ASPIRIN [Suspect]
     Indication: ACUTE MYOCARDIAL INFARCTION
     Dosage: TOTAL DAILY DOSE: 100 MG  UNIT DOSE: 100 MG
     Route: 048
     Dates: start: 20061125, end: 20070710
  2. TICLOPIDINE HCL [Suspect]
     Indication: ACUTE MYOCARDIAL INFARCTION
     Dosage: TOTAL DAILY DOSE: 200 MG  UNIT DOSE: 100 MG
     Route: 048
     Dates: start: 20061026, end: 20070710
  3. SIGMART [Concomitant]
     Indication: ACUTE MYOCARDIAL INFARCTION
     Dosage: TOTAL DAILY DOSE: 15 MG  UNIT DOSE: 5 MG
     Route: 048
     Dates: start: 20061026, end: 20070710
  4. PARIET [Concomitant]
     Indication: GASTRIC ULCER
     Dosage: TOTAL DAILY DOSE: 10 MG  UNIT DOSE: 10 MG
     Route: 048
     Dates: start: 20061026, end: 20070710
  5. KAMAG G [Concomitant]
     Indication: GASTRIC ULCER
     Route: 048
     Dates: start: 20061026, end: 20070710

REACTIONS (1)
  - LARGE INTESTINAL HAEMORRHAGE [None]
